FAERS Safety Report 10414682 (Version 1)
Quarter: 2014Q2

REPORT INFORMATION
  Report Type: Spontaneous
  Country: US (occurrence: None)
  Receive Date: 20140514
  Receipt Date: 20140514
  Transmission Date: 20141212
  Serious: Yes (Other)
  Sender: FDA-Public Use
  Company Number: 106103U

PATIENT
  Age: 30 Year
  Sex: Female
  Weight: 70.3 kg

DRUGS (1)
  1. CIMZIA [Suspect]
     Indication: CROHN^S DISEASE
     Dosage: FIRST INDUCTION DOES: 400 MG; NO OF DOSES: 1 SUBCUTANEOUS?
     Route: 058
     Dates: start: 20131122, end: 201311

REACTIONS (3)
  - Injection site urticaria [None]
  - Chest discomfort [None]
  - Dyspnoea [None]
